FAERS Safety Report 7331525-7 (Version None)
Quarter: 2011Q1

REPORT INFORMATION
  Report Type: 
  Country: None (occurrence: None)
  Receive Date: 20110304
  Receipt Date: 20110221
  Transmission Date: 20110831
  Serious: Yes (Life-Threatening)
  Sender: FDA-Public Use
  Company Number: PL-SANOFI-AVENTIS-2010SA074387

PATIENT
  Age: 66 Year
  Sex: Female
  Weight: 98 kg

DRUGS (3)
  1. MULTAQ [Suspect]
     Route: 048
     Dates: start: 20101025, end: 20101207
  2. CO-DIOVAN [Concomitant]
     Dosage: DOSE:1.5 UNIT(S)
     Route: 048
     Dates: start: 20080101
  3. TRITACE [Concomitant]
     Route: 048
     Dates: start: 20080101

REACTIONS (3)
  - DYSPNOEA [None]
  - BRONCHOSPASM [None]
  - PROLONGED EXPIRATION [None]
